FAERS Safety Report 13022399 (Version 1)
Quarter: 2016Q4

REPORT INFORMATION
  Report Type: Report from Study
  Country: US (occurrence: US)
  Receive Date: 20161213
  Receipt Date: 20161213
  Transmission Date: 20170207
  Serious: Yes (Hospitalization, Other)
  Sender: FDA-Public Use
  Company Number: US-MALLINCKRODT-T201606265

PATIENT
  Age: 68 Year
  Sex: Male

DRUGS (2)
  1. REPOSITORY CORTICOTROPIN INJECTION [Suspect]
     Active Substance: CORTICOTROPIN
     Indication: PROTEINURIA
     Dosage: 80 UNITS / 1 ML, 2 TIMES PER WEEK (MONDAY AND THURSDAY)
     Route: 058
     Dates: start: 20160824, end: 20161107
  2. REPOSITORY CORTICOTROPIN INJECTION [Suspect]
     Active Substance: CORTICOTROPIN
     Indication: NEPHROTIC SYNDROME

REACTIONS (11)
  - Fatigue [Not Recovered/Not Resolved]
  - Oedema [Unknown]
  - Joint effusion [Unknown]
  - Pleural effusion [Unknown]
  - Fluid retention [Not Recovered/Not Resolved]
  - Arthralgia [Not Recovered/Not Resolved]
  - Diarrhoea [Unknown]
  - Toxicity to various agents [Unknown]
  - Gout [Not Recovered/Not Resolved]
  - Focal segmental glomerulosclerosis [Unknown]
  - Gait disturbance [Not Recovered/Not Resolved]

NARRATIVE: CASE EVENT DATE: 2016
